FAERS Safety Report 9082790 (Version 1)
Quarter: 2013Q1

REPORT INFORMATION
  Report Type: Spontaneous
  Country: US (occurrence: US)
  Receive Date: 20130218
  Receipt Date: 20130218
  Transmission Date: 20140127
  Serious: No
  Sender: FDA-Public Use
  Company Number: US-PFIZER INC-2013057865

PATIENT
  Age: 51 Year
  Sex: Female
  Weight: 70.3 kg

DRUGS (14)
  1. XELJANZ [Suspect]
     Dosage: 5 MG, 2X/DAY
     Route: 048
  2. METHOTREXATE [Concomitant]
     Dosage: 2.5 MG, UNK
  3. PROZAC [Concomitant]
     Dosage: 10 MG, UNK
  4. LASIX [Concomitant]
     Dosage: 20 MG, UNK
  5. POTASSIUM CHLORIDE [Concomitant]
     Dosage: UNK
  6. ACETYLSALICYLIC ACID [Concomitant]
     Dosage: 81 MG, UNK
  7. SPIRONOLACTONE [Concomitant]
     Dosage: 25 MG, UNK
  8. FLEXERIL [Concomitant]
     Dosage: 10 MG, UNK
  9. SYNTHROID [Concomitant]
     Dosage: 100 UG, ONE TAB DAILY
  10. COREG [Concomitant]
     Dosage: 12.5 MG, UNK
  11. NOVOLOG [Concomitant]
     Dosage: UNK
  12. METFORMIN [Concomitant]
     Dosage: 500 MG, UNK
  13. INSULIN DETEMIR [Concomitant]
     Dosage: UNK
  14. PLAQUENIL [Concomitant]
     Dosage: 200 MG, UNK

REACTIONS (2)
  - Pain in extremity [Unknown]
  - Arthralgia [Unknown]
